FAERS Safety Report 6834200-8 (Version None)
Quarter: 2010Q3

REPORT INFORMATION
  Report Type: 
  Country: None (occurrence: None)
  Receive Date: 20100712
  Receipt Date: 20070416
  Transmission Date: 20110219
  Serious: No
  Sender: FDA-Public Use
  Company Number: US-PFIZER INC-2007031456

PATIENT
  Sex: Female
  Weight: 72.12 kg

DRUGS (2)
  1. CHANTIX [Suspect]
     Indication: SMOKING CESSATION THERAPY
     Dates: start: 20070409
  2. SERTRALINE HCL [Concomitant]

REACTIONS (1)
  - HEADACHE [None]
